FAERS Safety Report 21494079 (Version 1)
Quarter: 2022Q4

REPORT INFORMATION
  Report Type: Spontaneous
  Country: CN (occurrence: None)
  Receive Date: 20221021
  Receipt Date: 20221021
  Transmission Date: 20230113
  Serious: Yes (Other)
  Sender: FDA-Public Use
  Company Number: 2022A348542

PATIENT

DRUGS (2)
  1. OSIMERTINIB [Suspect]
     Active Substance: OSIMERTINIB
     Indication: Lung neoplasm malignant
     Route: 048
  2. OSIMERTINIB [Suspect]
     Active Substance: OSIMERTINIB
     Indication: Metastases to central nervous system
     Route: 048

REACTIONS (1)
  - Malignant neoplasm progression [Unknown]
